FAERS Safety Report 7473743-3 (Version None)
Quarter: 2011Q2

REPORT INFORMATION
  Report Type: 
  Country: None (occurrence: None)
  Receive Date: 20110511
  Receipt Date: 20110502
  Transmission Date: 20111010
  Serious: Yes (Hospitalization, Other)
  Sender: FDA-Public Use
  Company Number: FR-BRISTOL-MYERS SQUIBB COMPANY-15728728

PATIENT
  Age: 69 Year
  Sex: Female

DRUGS (16)
  1. TEMAZEPAM [Suspect]
     Indication: BACK PAIN
     Route: 048
     Dates: start: 20110110, end: 20110118
  2. BIPERIDYS [Concomitant]
     Route: 048
  3. LOVENOX [Suspect]
     Dosage: SOLN FOR INJECTION
     Route: 058
     Dates: start: 20110111, end: 20110118
  4. LEVOTHYROXINE SODIUM [Concomitant]
     Route: 048
  5. PARIET [Concomitant]
     Route: 048
  6. CACIT D3 [Concomitant]
  7. KETOPROFEN [Suspect]
     Indication: BACK PAIN
     Dosage: TABLET
     Route: 048
     Dates: start: 20110110, end: 20110118
  8. TRAMADOL HYDROCHLORIDE [Suspect]
     Indication: BACK PAIN
     Route: 048
     Dates: start: 20110111, end: 20110118
  9. LEVEMIR [Concomitant]
     Dosage: SOLN FOR INJECTION
  10. GLUCOPHAGE [Suspect]
     Indication: TYPE 2 DIABETES MELLITUS
     Dosage: 1DF IN THE MORNING AND IN THE NIGHT
     Route: 048
     Dates: end: 20110118
  11. DIAMICRON [Suspect]
     Indication: TYPE 2 DIABETES MELLITUS
     Dosage: DIAMICRON 30MG,2 DF IN THE MORNING
     Route: 048
     Dates: end: 20110119
  12. ADVAIR HFA [Concomitant]
  13. ACETAMINOPHEN [Suspect]
     Indication: BACK PAIN
     Route: 048
     Dates: start: 20110110, end: 20110118
  14. LEXOMIL [Concomitant]
  15. ACTONEL [Concomitant]
     Route: 048
  16. FENOFIBRATE [Suspect]
     Indication: DYSLIPIDAEMIA
     Dosage: IN THE NIGHT
     Route: 048
     Dates: end: 20110118

REACTIONS (4)
  - CHOLECYSTITIS [None]
  - RENAL FAILURE ACUTE [None]
  - SOMNOLENCE [None]
  - GENERAL PHYSICAL HEALTH DETERIORATION [None]
